FAERS Safety Report 6604230-X (Version None)
Quarter: 2010Q1

REPORT INFORMATION
  Report Type: 
  Country: None (occurrence: None)
  Receive Date: 20100226
  Receipt Date: 20090713
  Transmission Date: 20100710
  Serious: No
  Sender: FDA-Public Use
  Company Number: A0796669A

PATIENT
  Age: 53 Year
  Sex: Female

DRUGS (10)
  1. LAMICTAL CD [Suspect]
     Dosage: 400MG PER DAY
     Route: 048
     Dates: start: 20090501, end: 20090624
  2. EFFEXOR [Concomitant]
  3. RITALIN [Concomitant]
  4. METOPROLOL TARTRATE [Concomitant]
  5. TRICOR [Concomitant]
  6. VYTORIN [Concomitant]
  7. HYDROCHLOROTHIAZIDE [Concomitant]
  8. ABILIFY [Concomitant]
  9. ASPIRIN [Concomitant]
  10. ALEVE (CAPLET) [Concomitant]

REACTIONS (1)
  - RASH [None]
